FAERS Safety Report 18014507 (Version 1)
Quarter: 2020Q3

REPORT INFORMATION
  Report Type: Spontaneous
  Country: CZ (occurrence: CZ)
  Receive Date: 20200713
  Receipt Date: 20200713
  Transmission Date: 20201103
  Serious: Yes (Hospitalization)
  Sender: FDA-Public Use
  Company Number: NVSC2020CZ195971

PATIENT
  Sex: Female

DRUGS (4)
  1. MOXIFLOXACIN. [Concomitant]
     Active Substance: MOXIFLOXACIN
     Indication: MYCOBACTERIUM ABSCESSUS INFECTION
     Dosage: UNK
     Route: 065
  2. AZITHROMYCIN ANHYDROUS. [Suspect]
     Active Substance: AZITHROMYCIN ANHYDROUS
     Indication: MYCOBACTERIUM ABSCESSUS INFECTION
     Dosage: 200 MG (DAILY)
     Route: 065
  3. IMUKIN [Concomitant]
     Active Substance: INTERFERON GAMMA
     Indication: PRODUCT USED FOR UNKNOWN INDICATION
     Dosage: 0.5 ML (2?3 X WEEKLY)
     Route: 058
  4. CALCIUM [Concomitant]
     Active Substance: CALCIUM
     Indication: SUPPORTIVE CARE
     Dosage: UNK
     Route: 065

REACTIONS (3)
  - Tonsillar hypertrophy [Unknown]
  - Product use in unapproved indication [Unknown]
  - Lymphadenopathy [Unknown]
